FAERS Safety Report 8186550-3 (Version None)
Quarter: 2012Q1

REPORT INFORMATION
  Report Type: 
  Country: None (occurrence: None)
  Receive Date: 20120302
  Receipt Date: 20120302
  Transmission Date: 20120608
  Serious: Yes (Hospitalization)
  Sender: FDA-Public Use
  Company Number: None

PATIENT
  Age: 53 Year
  Sex: Male
  Weight: 124.1 kg

DRUGS (2)
  1. HEPARIN [Suspect]
     Indication: THROMBOSIS PROPHYLAXIS
     Dosage: 5000 OTHER SQ
     Route: 058
     Dates: start: 20120208, end: 20120212
  2. HEPARIN [Suspect]
     Indication: THROMBOSIS PROPHYLAXIS
     Dosage: 5000 OTHER SQ
     Route: 058
     Dates: start: 20120131, end: 20120131

REACTIONS (6)
  - HYPERNATRAEMIA [None]
  - METABOLIC ENCEPHALOPATHY [None]
  - HEPARIN-INDUCED THROMBOCYTOPENIA [None]
  - MENTAL STATUS CHANGES [None]
  - NECROTISING FASCIITIS [None]
  - DELIRIUM [None]
